FAERS Safety Report 8545219-3 (Version None)
Quarter: 2012Q3

REPORT INFORMATION
  Report Type: 
  Country: None (occurrence: None)
  Receive Date: 20120727
  Receipt Date: 20120531
  Transmission Date: 20120928
  Serious: No
  Sender: FDA-Public Use
  Company Number: US-009507513-2012SP023084

PATIENT

DRUGS (6)
  1. CLARITIN [Suspect]
     Indication: EYE PRURITUS
  2. CLARITIN [Suspect]
     Indication: SEASONAL ALLERGY
     Dosage: 10 MG, QD
     Route: 048
     Dates: start: 20120322, end: 20120402
  3. CLARITIN [Suspect]
     Indication: SNEEZING
  4. CLARITIN [Suspect]
     Indication: RHINORRHOEA
  5. CLARITIN [Suspect]
     Indication: HOUSE DUST ALLERGY
  6. CLARITIN [Suspect]
     Indication: NASAL DISCOMFORT

REACTIONS (1)
  - NO THERAPEUTIC RESPONSE [None]
